FAERS Safety Report 10606262 (Version 2)
Quarter: 2014Q4

REPORT INFORMATION
  Report Type: Spontaneous
  Country: TR (occurrence: None)
  Receive Date: 20141121
  Receipt Date: 20141210
  Transmission Date: 20150529
  Serious: Yes (Other)
  Sender: FDA-Public Use
  Company Number: FK201405317

PATIENT
  Age: 29 Year
  Sex: Male

DRUGS (3)
  1. AMPICILLIN [Suspect]
     Active Substance: AMPICILLIN
     Indication: ENCEPHALITIS
     Dosage: 2 GM, 6 IN 1 D
  2. PREDNISOLONE. [Suspect]
     Active Substance: PREDNISOLONE
     Indication: POLYMYOSITIS
  3. GENTAMICIN. [Suspect]
     Active Substance: GENTAMICIN
     Indication: ENCEPHALITIS

REACTIONS (15)
  - Transaminases increased [None]
  - Nephropathy toxic [None]
  - Nausea [None]
  - Vomiting [None]
  - Blood glucose increased [None]
  - Hepatitis acute [None]
  - Hemiplegia [None]
  - Listeria encephalitis [None]
  - Pyrexia [None]
  - Nephritis [None]
  - Headache [None]
  - Asthenia [None]
  - Eye movement disorder [None]
  - Cytomegalovirus hepatitis [None]
  - Hepatotoxicity [None]
